FAERS Safety Report 9090563 (Version 1)
Quarter: 2013Q1

REPORT INFORMATION
  Report Type: Report from Study
  Country: US (occurrence: US)
  Receive Date: 20130131
  Receipt Date: 20130131
  Transmission Date: 20140127
  Serious: No
  Sender: FDA-Public Use
  Company Number: US-ABBOTT-12P-163-0990403-00

PATIENT
  Sex: Female
  Weight: 60.84 kg

DRUGS (13)
  1. HUMIRA [Suspect]
     Indication: RHEUMATOID ARTHRITIS
     Route: 058
     Dates: start: 2011, end: 20120824
  2. HUMIRA [Suspect]
     Route: 058
     Dates: start: 201210
  3. DILANTIN [Concomitant]
     Indication: CONVULSION
  4. TOPAMAX [Concomitant]
     Indication: CONVULSION
  5. METHOTREXATE [Concomitant]
     Indication: RHEUMATOID ARTHRITIS
  6. TRAZODONE [Concomitant]
     Indication: DEPRESSION
  7. TRAZODONE [Concomitant]
     Indication: SLEEP DISORDER THERAPY
  8. LISINOPRIL [Concomitant]
     Indication: HYPERTENSION
  9. PREDNISONE [Concomitant]
     Indication: PRODUCT USED FOR UNKNOWN INDICATION
  10. FOLIC ACID [Concomitant]
     Indication: PRODUCT USED FOR UNKNOWN INDICATION
  11. METFORMIN [Concomitant]
     Indication: DIABETES MELLITUS
  12. GLIPIZIDE [Concomitant]
     Indication: DIABETES MELLITUS
  13. DICLOFENAC [Concomitant]
     Indication: RHEUMATOID ARTHRITIS

REACTIONS (2)
  - Bronchitis [Recovered/Resolved]
  - Pain [Recovered/Resolved]
